FAERS Safety Report 16542914 (Version 3)
Quarter: 2019Q4

REPORT INFORMATION
  Report Type: Spontaneous
  Country: US (occurrence: US)
  Receive Date: 20190709
  Receipt Date: 20191213
  Transmission Date: 20200122
  Serious: No
  Sender: FDA-Public Use
  Company Number: PHEH2019US027322

PATIENT
  Sex: Female
  Weight: 93.9 kg

DRUGS (4)
  1. FIRDAPSE [Suspect]
     Active Substance: AMIFAMPRIDINE
     Indication: MYASTHENIC SYNDROME
     Dosage: 20 MG, Q4W
     Route: 048
     Dates: start: 201601, end: 201901
  2. FIRDAPSE [Suspect]
     Active Substance: AMIFAMPRIDINE
     Dosage: 20 MG, Q4W
     Route: 048
     Dates: start: 201901
  3. PREDNISONE. [Concomitant]
     Active Substance: PREDNISONE
     Indication: PRODUCT USED FOR UNKNOWN INDICATION
     Route: 065
  4. CICLOSPORIN [Suspect]
     Active Substance: CYCLOSPORINE
     Indication: PRODUCT USED FOR UNKNOWN INDICATION
     Dosage: 100 MG, BID
     Route: 065
     Dates: start: 201901, end: 201903

REACTIONS (11)
  - Paraesthesia [Unknown]
  - Abdominal pain [Recovered/Resolved]
  - Hypertonic bladder [Unknown]
  - Therapeutic response shortened [Unknown]
  - Malaise [Recovered/Resolved]
  - Nasal congestion [Unknown]
  - Sinus disorder [Unknown]
  - Sinusitis [Recovered/Resolved]
  - Pain [Recovered/Resolved]
  - Vomiting [Recovered/Resolved]
  - Nausea [Recovered/Resolved]
